FAERS Safety Report 17271000 (Version 2)
Quarter: 2020Q1

REPORT INFORMATION
  Report Type: Spontaneous
  Country: KZ (occurrence: KZ)
  Receive Date: 20200115
  Receipt Date: 20200218
  Transmission Date: 20200409
  Serious: Yes (Other)
  Sender: FDA-Public Use
  Company Number: KZ-ABBVIE-20K-230-3232017-00

PATIENT
  Sex: Male
  Weight: 56 kg

DRUGS (1)
  1. HUMIRA [Suspect]
     Active Substance: ADALIMUMAB
     Indication: ANKYLOSING SPONDYLITIS
     Route: 058
     Dates: start: 20190915, end: 20191217

REACTIONS (1)
  - Acquired hepatocerebral degeneration [Unknown]

NARRATIVE: CASE EVENT DATE: 2019
